FAERS Safety Report 5679866-3 (Version None)
Quarter: 2008Q1

REPORT INFORMATION
  Report Type: 
  Country: None (occurrence: None)
  Receive Date: 20080324
  Receipt Date: 20080319
  Transmission Date: 20080703
  Serious: Yes (Hospitalization)
  Sender: FDA-Public Use
  Company Number: 6041638

PATIENT
  Age: 39 Year
  Sex: Male

DRUGS (2)
  1. BISOPROLOL FUMARATE [Suspect]
     Indication: DRUG USE FOR UNKNOWN INDICATION
     Dosage: 150 MG (150 MG, 1 IN 1 D) ORAL
     Route: 048
  2. AMLODIPINE [Suspect]
     Indication: DRUG USE FOR UNKNOWN INDICATION
     Dosage: 850 MG (850 MG, 1 IN 1 D) ORAL
     Route: 048

REACTIONS (6)
  - CONTINUOUS HAEMODIAFILTRATION [None]
  - DRUG INEFFECTIVE [None]
  - PLEURAL EFFUSION [None]
  - PULMONARY CONGESTION [None]
  - RENAL FAILURE [None]
  - SHOCK [None]
